FAERS Safety Report 12875924 (Version 1)
Quarter: 2016Q4

REPORT INFORMATION
  Report Type: Spontaneous
  Country: US (occurrence: US)
  Receive Date: 20161024
  Receipt Date: 20161024
  Transmission Date: 20170207
  Serious: No
  Sender: FDA-Public Use
  Company Number: US-JAZZ-2016-US-015110

PATIENT
  Sex: Female

DRUGS (25)
  1. ZOFRAN [Concomitant]
     Active Substance: ONDANSETRON HYDROCHLORIDE
  2. AMLODIPINE BESYLATE. [Concomitant]
     Active Substance: AMLODIPINE BESYLATE
  3. TRAMADOL HCL [Concomitant]
     Active Substance: TRAMADOL HYDROCHLORIDE
  4. CALCIUM ANTACID [Concomitant]
     Active Substance: CALCIUM CARBONATE
  5. INDERAL [Concomitant]
     Active Substance: PROPRANOLOL HYDROCHLORIDE
  6. ZYRTEC [Concomitant]
     Active Substance: CETIRIZINE HYDROCHLORIDE
  7. IBUPROFEN. [Concomitant]
     Active Substance: IBUPROFEN
  8. FLAXSEED [Concomitant]
     Active Substance: FLAX SEED
  9. XYREM [Suspect]
     Active Substance: SODIUM OXYBATE
     Indication: CATAPLEXY
     Dosage: DOSE ADJUSTMENTS
     Route: 048
     Dates: start: 200306, end: 200502
  10. CALCIUM +D [Concomitant]
     Active Substance: CALCIUM\VITAMIN D
  11. ZINC [Concomitant]
     Active Substance: ZINC\ZINC CHLORIDE
  12. SALINE [Concomitant]
     Active Substance: SODIUM CHLORIDE
  13. XYREM [Suspect]
     Active Substance: SODIUM OXYBATE
     Dosage: DOSE ADJUSTMENTS
     Route: 048
     Dates: start: 201204, end: 201204
  14. PRILOSEC [Concomitant]
     Active Substance: OMEPRAZOLE MAGNESIUM
  15. METFORMIN HCL [Concomitant]
     Active Substance: METFORMIN HYDROCHLORIDE
  16. MULTIVITAMIN [Concomitant]
     Active Substance: VITAMINS
  17. XYREM [Suspect]
     Active Substance: SODIUM OXYBATE
     Indication: NARCOLEPSY
     Dosage: 1 G, BID
     Route: 048
     Dates: start: 200303, end: 200306
  18. XYREM [Suspect]
     Active Substance: SODIUM OXYBATE
     Dosage: 3 G, BID
     Route: 048
     Dates: start: 200502, end: 2010
  19. FORTAMET [Concomitant]
     Active Substance: METFORMIN HYDROCHLORIDE
  20. XYREM [Suspect]
     Active Substance: SODIUM OXYBATE
     Dosage: 2.25 G, BID
     Route: 048
     Dates: start: 201203, end: 201204
  21. XYREM [Suspect]
     Active Substance: SODIUM OXYBATE
     Dosage: 4.5 G, BID
     Route: 048
     Dates: start: 201204
  22. VITAMIN C [Concomitant]
     Active Substance: ASCORBIC ACID
  23. OMEGA 3 FISH OIL [Concomitant]
     Active Substance: FISH OIL\OMEGA-3 FATTY ACIDS
  24. RITALIN [Concomitant]
     Active Substance: METHYLPHENIDATE HYDROCHLORIDE
  25. VITAMIN E D ALPHA TOCOPHEROL [Concomitant]

REACTIONS (1)
  - Stomatitis [Not Recovered/Not Resolved]
